FAERS Safety Report 5151695-9 (Version None)
Quarter: 2006Q4

REPORT INFORMATION
  Report Type: 
  Country: None (occurrence: None)
  Receive Date: 20061115
  Receipt Date: 20050126
  Transmission Date: 20070319
  Serious: Yes (Disabling)
  Sender: FDA-Public Use
  Company Number: US-PURDUE-USA_2005_0018679

PATIENT
  Age: 46 Year
  Sex: Male

DRUGS (2)
  1. OXYCODONE HYDROCHLORIDE [Suspect]
     Indication: PAIN
  2. UNKNOWN [Concomitant]

REACTIONS (1)
  - HOMICIDE [None]
